FAERS Safety Report 24686433 (Version 1)
Quarter: 2024Q4

REPORT INFORMATION
  Report Type: Spontaneous
  Country: US (occurrence: US)
  Receive Date: 20241202
  Receipt Date: 20241202
  Transmission Date: 20250115
  Serious: Yes (Hospitalization)
  Sender: DR REDDYS
  Company Number: None

PATIENT
  Age: 35 Year
  Sex: Male

DRUGS (3)
  1. TACROLIMUS [Suspect]
     Active Substance: TACROLIMUS
     Indication: Product used for unknown indication
     Dosage: TAC 3 MG BID
  2. TACROLIMUS [Suspect]
     Active Substance: TACROLIMUS
     Dosage: TACROLIMUS WAS REDUCED TO 1MG BID
  3. MYCOPHENOLATE MOFETIL [Suspect]
     Active Substance: MYCOPHENOLATE MOFETIL
     Dosage: MMF 1GM BID

REACTIONS (3)
  - Histoplasmosis disseminated [Recovering/Resolving]
  - Rhinovirus infection [Recovering/Resolving]
  - Enterovirus infection [Recovering/Resolving]
